FAERS Safety Report 24197952 (Version 1)
Quarter: 2024Q3

REPORT INFORMATION
  Report Type: Spontaneous
  Country: GB (occurrence: GB)
  Receive Date: 20240812
  Receipt Date: 20240812
  Transmission Date: 20241017
  Serious: Yes (Other)
  Sender: CELLTRION
  Company Number: GB-CELLTRION INC.-2024GB018759

PATIENT

DRUGS (1)
  1. YUFLYMA [Suspect]
     Active Substance: ADALIMUMAB-AATY
     Indication: Crohn^s disease
     Dosage: YUFLYMA (ADALIMUMAB) 40MG PEN PK2
     Route: 058
     Dates: start: 202407

REACTIONS (3)
  - Skin cancer [Unknown]
  - Lesion excision [Unknown]
  - Electrocauterisation [Unknown]

NARRATIVE: CASE EVENT DATE: 20240723
